FAERS Safety Report 12846970 (Version 2)
Quarter: 2016Q4

REPORT INFORMATION
  Report Type: Report from Study
  Country: US (occurrence: US)
  Receive Date: 20161014
  Receipt Date: 20161213
  Transmission Date: 20170207
  Serious: Yes (Hospitalization, Other)
  Sender: FDA-Public Use
  Company Number: PHEH2016US026035

PATIENT
  Age: 65 Year
  Sex: Female

DRUGS (2)
  1. AFINITOR [Suspect]
     Active Substance: EVEROLIMUS
     Indication: BACTERIAL INFECTION
     Dosage: 5 MG, QD
     Route: 048
  2. AFINITOR [Suspect]
     Active Substance: EVEROLIMUS
     Dosage: UNK
     Route: 048
     Dates: start: 20140803

REACTIONS (5)
  - Diarrhoea [Unknown]
  - Fibula fracture [Unknown]
  - Intestinal obstruction [Unknown]
  - Product use issue [Unknown]
  - Carcinoid syndrome [Unknown]

NARRATIVE: CASE EVENT DATE: 20160817
